APPROVED DRUG PRODUCT: NASACORT HFA
Active Ingredient: TRIAMCINOLONE ACETONIDE
Strength: 0.055MG/SPRAY
Dosage Form/Route: SPRAY, METERED;NASAL
Application: N020784 | Product #001
Applicant: SANOFI AVENTIS US LLC
Approved: Apr 7, 2004 | RLD: No | RS: No | Type: DISCN